FAERS Safety Report 6968978-X (Version None)
Quarter: 2010Q3

REPORT INFORMATION
  Report Type: 
  Country: None (occurrence: None)
  Receive Date: 20100903
  Receipt Date: 20100903
  Transmission Date: 20110219
  Serious: Yes (Hospitalization)
  Sender: FDA-Public Use
  Company Number: None

PATIENT
  Age: 41 Year
  Sex: Male
  Weight: 75 kg

DRUGS (1)
  1. MEROPENEM [Suspect]
     Indication: PAIN
     Dates: start: 20100618, end: 20100622

REACTIONS (8)
  - DRUG ERUPTION [None]
  - PANCREAS INFECTION [None]
  - PANCREATIC CYST [None]
  - PRURITUS [None]
  - PRURITUS GENERALISED [None]
  - RASH ERYTHEMATOUS [None]
  - RASH PRURITIC [None]
  - SKIN PLAQUE [None]
